FAERS Safety Report 23664684 (Version 1)
Quarter: 2024Q1

REPORT INFORMATION
  Report Type: Report from Study
  Country: US (occurrence: US)
  Receive Date: 20240322
  Receipt Date: 20240322
  Transmission Date: 20240410
  Serious: Yes (Hospitalization)
  Sender: FDA-Public Use
  Company Number: US-REGENERON PHARMACEUTICALS, INC.-2024-046673

PATIENT
  Sex: Female

DRUGS (1)
  1. CEMIPLIMAB [Suspect]
     Active Substance: CEMIPLIMAB
     Indication: Neoplasm malignant
     Dosage: UNK
     Route: 065
     Dates: start: 20240228

REACTIONS (6)
  - Lethargy [Unknown]
  - Dysphagia [Recovering/Resolving]
  - Gait disturbance [Unknown]
  - Somnolence [Recovering/Resolving]
  - Off label use [Unknown]
  - Asthenia [Unknown]

NARRATIVE: CASE EVENT DATE: 20240312
